FAERS Safety Report 6869474-0 (Version None)
Quarter: 2010Q3

REPORT INFORMATION
  Report Type: 
  Country: None (occurrence: None)
  Receive Date: 20100722
  Receipt Date: 20100722
  Transmission Date: 20110219
  Serious: Yes (Death, Hospitalization)
  Sender: FDA-Public Use
  Company Number: None

PATIENT
  Sex: Female
  Weight: 25.2 kg

DRUGS (4)
  1. DOXORUBICIN HYDROCHLORIDE [Suspect]
     Dosage: 50 MG
  2. VINCRISTINE SULFATE [Suspect]
     Dosage: 1.2 MG
  3. FLUOROURACIL [Suspect]
     Dosage: 500 MG
  4. CISPLATIN [Suspect]
     Dosage: 86 MG

REACTIONS (24)
  - ABDOMINAL PAIN [None]
  - ANAEMIA [None]
  - CARDIO-RESPIRATORY ARREST [None]
  - CARDIOMEGALY [None]
  - CYANOSIS [None]
  - DILATATION VENTRICULAR [None]
  - DYSURIA [None]
  - EJECTION FRACTION DECREASED [None]
  - GALLOP RHYTHM PRESENT [None]
  - GASTRITIS [None]
  - GENERALISED OEDEMA [None]
  - HEART RATE DECREASED [None]
  - HYPOALBUMINAEMIA [None]
  - HYPOTENSION [None]
  - LEFT VENTRICULAR END-DIASTOLIC PRESSURE DECREASED [None]
  - NAUSEA [None]
  - NEUTROPENIA [None]
  - OEDEMA [None]
  - PULSE ABSENT [None]
  - PYREXIA [None]
  - RIGHT ATRIAL DILATATION [None]
  - RIGHT VENTRICULAR DYSFUNCTION [None]
  - THROMBOCYTOPENIA [None]
  - VOMITING [None]
